FAERS Safety Report 5238645-1 (Version None)
Quarter: 2007Q1

REPORT INFORMATION
  Report Type: 
  Country: None (occurrence: None)
  Receive Date: 20070215
  Receipt Date: 20070208
  Transmission Date: 20070707
  Serious: Yes (Death, Other)
  Sender: FDA-Public Use
  Company Number: PT-BRISTOL-MYERS SQUIBB COMPANY-13665450

PATIENT
  Age: 44 Year
  Sex: Male

DRUGS (1)
  1. DASATINIB [Suspect]
     Indication: ACUTE LYMPHOCYTIC LEUKAEMIA
     Dates: start: 20061101, end: 20070115

REACTIONS (10)
  - ANOREXIA [None]
  - DEATH [None]
  - HYPOTENSION [None]
  - HYPOXIA [None]
  - NAUSEA [None]
  - NO THERAPEUTIC RESPONSE [None]
  - PLEURAL EFFUSION [None]
  - PNEUMONIA [None]
  - RESPIRATORY FAILURE [None]
  - VOMITING [None]
